FAERS Safety Report 16838683 (Version 1)
Quarter: 2019Q3

REPORT INFORMATION
  Report Type: Report from Study
  Country: CA (occurrence: CA)
  Receive Date: 20190923
  Receipt Date: 20190923
  Transmission Date: 20191005
  Serious: Yes (Life-Threatening, Other)
  Sender: FDA-Public Use
  Company Number: CA-RECRO GAINESVILLE LLC-REPH-2019-000196

PATIENT
  Age: 41 Year
  Sex: Male

DRUGS (2)
  1. VERAPAMIL HYDROCHLORIDE SUSTAINED RELEASE [Suspect]
     Active Substance: VERAPAMIL HYDROCHLORIDE
     Dosage: 80 MILLIGRAM, TID
     Route: 048
  2. VERAPAMIL HYDROCHLORIDE SUSTAINED RELEASE [Suspect]
     Active Substance: VERAPAMIL HYDROCHLORIDE
     Dosage: 85, 80 MILLIGRAM, ONE TIME DOSE
     Route: 048

REACTIONS (11)
  - Periorbital oedema [Unknown]
  - Hypotension [Recovered/Resolved]
  - Atrioventricular dissociation [Recovered/Resolved]
  - Flushing [Unknown]
  - Hyperglycaemia [Recovered/Resolved]
  - Depressed level of consciousness [Recovered/Resolved]
  - Intentional overdose [Recovered/Resolved]
  - Hypokalaemia [Recovered/Resolved]
  - Tachypnoea [Recovered/Resolved]
  - Oliguria [Recovered/Resolved]
  - Lethargy [Recovered/Resolved]
